FAERS Safety Report 7413406-3 (Version None)
Quarter: 2011Q2

REPORT INFORMATION
  Report Type: 
  Country: None (occurrence: None)
  Receive Date: 20110413
  Receipt Date: 20110401
  Transmission Date: 20111010
  Serious: Yes (Other)
  Sender: FDA-Public Use
  Company Number: PHHY2011NZ27246

PATIENT
  Age: 46 Year
  Sex: Male

DRUGS (1)
  1. NEORAL [Suspect]

REACTIONS (1)
  - GINGIVAL HYPOPLASIA [None]
